FAERS Safety Report 12240589 (Version 1)
Quarter: 2016Q2

REPORT INFORMATION
  Report Type: Report from Study
  Country: CA (occurrence: CA)
  Receive Date: 20160405
  Receipt Date: 20160405
  Transmission Date: 20160815
  Serious: Yes (Other)
  Sender: FDA-Public Use
  Company Number: CA-UCBSA-2015018093

PATIENT
  Sex: Female

DRUGS (3)
  1. PREGVIT [Concomitant]
     Indication: PRODUCT USED FOR UNKNOWN INDICATION
     Dosage: UNK
     Route: 048
  2. CERTOLIZUMAB PEGOL PSA [Suspect]
     Active Substance: CERTOLIZUMAB PEGOL
     Indication: PSORIATIC ARTHROPATHY
     Dosage: 400 MG, EV 2 WEEKS(QOW)
     Route: 058
     Dates: start: 20141224, end: 20150121
  3. CERTOLIZUMAB PEGOL PSA [Suspect]
     Active Substance: CERTOLIZUMAB PEGOL
     Dosage: 200 MG, EV 2 WEEKS(QOW)
     Route: 058
     Dates: start: 20150204, end: 20150521

REACTIONS (8)
  - Ear congestion [Unknown]
  - Pregnancy [Unknown]
  - Swelling face [Unknown]
  - Oropharyngeal pain [Unknown]
  - Bacterial infection [Recovered/Resolved]
  - Nasal congestion [Unknown]
  - Psoriasis [Unknown]
  - Chills [Unknown]

NARRATIVE: CASE EVENT DATE: 2015
